FAERS Safety Report 25783393 (Version 2)
Quarter: 2025Q3

REPORT INFORMATION
  Report Type: Report from Study
  Country: TW (occurrence: TW)
  Receive Date: 20250910
  Receipt Date: 20250923
  Transmission Date: 20251021
  Serious: Yes (Other)
  Sender: ABBVIE
  Company Number: TW-ABBVIE-6449875

PATIENT
  Sex: Male

DRUGS (4)
  1. VENCLEXTA [Suspect]
     Active Substance: VENETOCLAX
     Indication: Product used for unknown indication
     Route: 048
  2. Folina [Concomitant]
     Indication: Product used for unknown indication
     Route: 048
  3. Purinetone [Concomitant]
     Indication: Product used for unknown indication
     Route: 048
  4. PREDNISOLONE [Concomitant]
     Active Substance: PREDNISOLONE
     Indication: Product used for unknown indication

REACTIONS (14)
  - Acute lymphocytic leukaemia [Unknown]
  - Drug hypersensitivity [Unknown]
  - Weight decreased [Unknown]
  - Gastritis [Unknown]
  - Anaemia [Unknown]
  - Thrombocytopenia [Unknown]
  - Febrile neutropenia [Unknown]
  - Stenotrophomonas infection [Unknown]
  - Chronic hepatitis B [Unknown]
  - Discomfort [Unknown]
  - Oral candidiasis [Unknown]
  - Gastrooesophageal reflux disease [Unknown]
  - Pancytopenia [Unknown]
  - Neutropenia [Unknown]
